FAERS Safety Report 9555074 (Version 2)
Quarter: 2014Q2

REPORT INFORMATION
  Report Type: Spontaneous
  Country: US (occurrence: US)
  Receive Date: 20130926
  Receipt Date: 20140421
  Transmission Date: 20141212
  Serious: Yes (Hospitalization, Other)
  Sender: FDA-Public Use
  Company Number: US-AMGEN-USASP2013067299

PATIENT
  Sex: Female

DRUGS (6)
  1. ENBREL [Suspect]
     Indication: PRODUCT USED FOR UNKNOWN INDICATION
     Dosage: 25 MG, 2 TIMES/WK
     Route: 064
  2. PRENATAL VITAMINS                  /07499601/ [Concomitant]
     Dosage: UNK, QD
     Route: 064
  3. FOLIC ACID [Concomitant]
     Dosage: UNK, QD
     Route: 064
  4. PROBIOTICS [Concomitant]
     Dosage: UNK, QD
     Route: 064
  5. PREVACID [Concomitant]
     Dosage: UNK
  6. ZANTAC [Concomitant]

REACTIONS (4)
  - Premature baby [Unknown]
  - Hernia [Unknown]
  - Exposure during breast feeding [Unknown]
  - Reflux gastritis [Unknown]
